FAERS Safety Report 21251888 (Version 1)
Quarter: 2022Q3

REPORT INFORMATION
  Report Type: Other
  Country: US (occurrence: US)
  Receive Date: 20220825
  Receipt Date: 20220825
  Transmission Date: 20221026
  Serious: Yes (Hospitalization, Other)
  Sender: FDA-Public Use
  Company Number: US-GBT-015473

PATIENT
  Sex: Female

DRUGS (1)
  1. OXBRYTA [Suspect]
     Active Substance: VOXELOTOR
     Indication: Sickle cell anaemia with crisis
     Dosage: ONGOING
     Route: 048
     Dates: start: 20210123

REACTIONS (5)
  - Foot fracture [Unknown]
  - Product administration interrupted [Unknown]
  - Herpes zoster [Unknown]
  - Lower limb fracture [Unknown]
  - Product dose omission issue [Unknown]
